FAERS Safety Report 9187352 (Version 2)
Quarter: 2013Q2

REPORT INFORMATION
  Report Type: Spontaneous
  Country: BR (occurrence: BR)
  Receive Date: 20130325
  Receipt Date: 20130528
  Transmission Date: 20140414
  Serious: Yes (Other)
  Sender: FDA-Public Use
  Company Number: PHHY2013BR028435

PATIENT
  Age: 32 Year
  Sex: Female
  Weight: 63 kg

DRUGS (4)
  1. TRILEPTAL [Suspect]
     Indication: MOOD ALTERED
     Dosage: 1 DF, DAILY
     Route: 048
     Dates: end: 20130316
  2. ALPRAZOLAM [Suspect]
     Indication: ANXIOLYTIC THERAPY
     Dosage: UNK UKN, UNK
  3. PAROXETINE [Suspect]
     Indication: DEPRESSION
     Dosage: UNK UKN, UNK
  4. ESCITALOPRAM OXALATE [Concomitant]
     Indication: DEPRESSION
     Dosage: ONE TABLET PER DAY
     Route: 048

REACTIONS (11)
  - Swelling face [Recovered/Resolved]
  - Dysphagia [Recovered/Resolved]
  - Gait disturbance [Recovered/Resolved]
  - Dyspnoea [Recovered/Resolved]
  - Hypokinesia [Recovered/Resolved]
  - Blister [Recovered/Resolved]
  - Pain in extremity [Not Recovered/Not Resolved]
  - Arthralgia [Not Recovered/Not Resolved]
  - Nausea [Recovered/Resolved]
  - Fatigue [Recovered/Resolved]
  - Decreased appetite [Recovered/Resolved]
